FAERS Safety Report 9298337 (Version 1)
Quarter: 2013Q2

REPORT INFORMATION
  Report Type: Spontaneous
  Country: ES (occurrence: ES)
  Receive Date: 20130520
  Receipt Date: 20130520
  Transmission Date: 20140414
  Serious: Yes (Life-Threatening)
  Sender: FDA-Public Use
  Company Number: PHHY2013ES049741

PATIENT
  Age: 10 Year
  Sex: Male

DRUGS (4)
  1. METHYLPHENIDATE [Suspect]
     Indication: ATTENTION DEFICIT/HYPERACTIVITY DISORDER
     Dosage: UNK UKN, UNK
  2. METHYLPHENIDATE [Suspect]
     Dosage: DOSE REDUCED (UNK DOSE)
  3. ATOMOXETINE [Concomitant]
     Indication: ATTENTION DEFICIT/HYPERACTIVITY DISORDER
     Dosage: UNK
  4. ATOMOXETINE [Concomitant]
     Dosage: DOSE INCREASED (UNK DOSE)

REACTIONS (3)
  - Suicide attempt [Unknown]
  - Frustration [Unknown]
  - Anger [Unknown]
